FAERS Safety Report 24118300 (Version 1)
Quarter: 2024Q3

REPORT INFORMATION
  Report Type: Spontaneous
  Country: DE (occurrence: DE)
  Receive Date: 20240722
  Receipt Date: 20240722
  Transmission Date: 20241017
  Serious: Yes (Other)
  Sender: MERCK
  Company Number: None

PATIENT
  Age: 69 Year
  Sex: Male
  Weight: 75 kg

DRUGS (4)
  1. VERICIGUAT [Suspect]
     Active Substance: VERICIGUAT
     Indication: Cardiac failure
     Dosage: UNK
     Route: 048
     Dates: start: 20240507, end: 20240610
  2. ENTRESTO [Concomitant]
     Active Substance: SACUBITRIL\VALSARTAN
     Dosage: UNK
  3. DAPAGLIFLOZIN [Concomitant]
     Active Substance: DAPAGLIFLOZIN
     Dosage: 10 MG
  4. EPLERENONE [Concomitant]
     Active Substance: EPLERENONE
     Dosage: 25 MG

REACTIONS (5)
  - Syncope [Recovered/Resolved]
  - Decreased activity [Recovered/Resolved]
  - Heart rate decreased [Recovered/Resolved]
  - Pulse pressure decreased [Recovered/Resolved]
  - Blood pressure decreased [Recovered/Resolved]

NARRATIVE: CASE EVENT DATE: 20240507
